FAERS Safety Report 6221756-1 (Version None)
Quarter: 2009Q2

REPORT INFORMATION
  Report Type: 
  Country: None (occurrence: None)
  Receive Date: 20090610
  Receipt Date: 20090528
  Transmission Date: 20091009
  Serious: Yes (Other)
  Sender: FDA-Public Use
  Company Number: DE-ELI_LILLY_AND_COMPANY-DE200905005747

PATIENT
  Age: 78 Year
  Sex: Female

DRUGS (3)
  1. FORTEO [Suspect]
     Indication: OSTEOPOROSIS
     Dosage: 40 UG, DAILY (1/D)
     Route: 058
     Dates: start: 20090430
  2. PROPAFENONE HCL [Concomitant]
  3. CARVEDILOL [Concomitant]

REACTIONS (3)
  - ATRIAL FIBRILLATION [None]
  - MEDICATION ERROR [None]
  - OVERDOSE [None]
